FAERS Safety Report 21280613 (Version 1)
Quarter: 2022Q3

REPORT INFORMATION
  Report Type: Spontaneous
  Country: US (occurrence: US)
  Receive Date: 20220901
  Receipt Date: 20220901
  Transmission Date: 20221027
  Serious: Yes (Other)
  Sender: FDA-Public Use
  Company Number: US-MYLANLABS-2022M1090200

PATIENT
  Sex: Female

DRUGS (6)
  1. PRAMIPEXOLE [Suspect]
     Active Substance: PRAMIPEXOLE
     Indication: Restless legs syndrome
     Dosage: UNK
     Route: 065
  2. CLONAZEPAM [Suspect]
     Active Substance: CLONAZEPAM
     Indication: Restless legs syndrome
     Dosage: UNK
     Route: 065
  3. PERGOLIDE [Suspect]
     Active Substance: PERGOLIDE
     Indication: Restless legs syndrome
     Dosage: UNK
     Route: 065
  4. ROTIGOTINE [Suspect]
     Active Substance: ROTIGOTINE
     Indication: Restless legs syndrome
     Dosage: UNK
     Route: 065
  5. CANNABINOL [Concomitant]
     Active Substance: CANNABINOL
     Indication: Restless legs syndrome
     Dosage: VAPOURISED
     Route: 065
  6. Cannabidiol;Tetrahydrocannabinols nos [Concomitant]
     Indication: Restless legs syndrome
     Dosage: VAPOURISED
     Route: 065

REACTIONS (4)
  - Condition aggravated [Recovered/Resolved]
  - Restless legs syndrome [Recovered/Resolved]
  - Drug ineffective for unapproved indication [Unknown]
  - Off label use [Unknown]
